FAERS Safety Report 7132285-5 (Version None)
Quarter: 2010Q4

REPORT INFORMATION
  Report Type: 
  Country: None (occurrence: None)
  Receive Date: 20101202
  Receipt Date: 20101119
  Transmission Date: 20110411
  Serious: Yes (Other)
  Sender: FDA-Public Use
  Company Number: PHHY2009CY42365

PATIENT
  Age: 35 Year
  Sex: Male
  Weight: 75 kg

DRUGS (3)
  1. EXJADE [Suspect]
     Dosage: 20 MG/KG/DAY
     Route: 048
     Dates: start: 20090817
  2. EXJADE [Suspect]
     Dosage: 26 MG/KG/DAY
     Route: 048
     Dates: end: 20090801
  3. EXJADE [Suspect]
     Dosage: 20 MG/KG/DAY
     Dates: start: 20100514

REACTIONS (4)
  - BLOOD CREATININE INCREASED [None]
  - CHROMATURIA [None]
  - DYSURIA [None]
  - RENAL COLIC [None]
